FAERS Safety Report 15129853 (Version 3)
Quarter: 2018Q3

REPORT INFORMATION
  Report Type: Report from Study
  Country: JP (occurrence: JP)
  Receive Date: 20180711
  Receipt Date: 20180801
  Transmission Date: 20181010
  Serious: Yes (Hospitalization)
  Sender: FDA-Public Use
  Company Number: JP-CELGENEUS-JPN-20180700543

PATIENT
  Age: 78 Year
  Sex: Male
  Weight: 81.5 kg

DRUGS (50)
  1. DAIPHEN [Concomitant]
     Active Substance: SULFAMETHOXAZOLE\TRIMETHOPRIM
     Dosage: .4286 TABLET
     Route: 048
     Dates: start: 20180706
  2. KETOPAMIN [Concomitant]
     Indication: TINEA INFECTION
     Dosage: 2 PERCENT
     Route: 061
     Dates: start: 20180626, end: 20180630
  3. HUMALOG [Concomitant]
     Active Substance: INSULIN LISPRO
     Indication: DIABETES MELLITUS
     Dosage: 4 IU (INTERNATIONAL UNIT)
     Route: 058
     Dates: start: 20180703, end: 20180708
  4. ROZEREM [Concomitant]
     Active Substance: RAMELTEON
     Indication: INSOMNIA
     Dosage: 8 MILLIGRAM
     Route: 048
     Dates: start: 20180710
  5. SOLULACT [Concomitant]
     Dosage: 1500 MILLILITER
     Route: 041
     Dates: start: 20180712, end: 20180713
  6. CC?4047 [Suspect]
     Active Substance: POMALIDOMIDE
     Indication: PLASMA CELL MYELOMA
     Dosage: 4 MILLIGRAM
     Route: 048
     Dates: start: 20160626, end: 20160808
  7. PARIET [Concomitant]
     Active Substance: RABEPRAZOLE SODIUM
     Dosage: 10 MILLIGRAM
     Route: 048
     Dates: start: 20180703
  8. BAYASPIRIN [Concomitant]
     Active Substance: ASPIRIN
     Indication: THROMBOSIS PROPHYLAXIS
     Dosage: 100 MILLIGRAM
     Route: 048
     Dates: start: 20080611, end: 20180630
  9. ENTECAVIR. [Concomitant]
     Active Substance: ENTECAVIR
     Indication: HEPATITIS B
     Dosage: .5 MILLIGRAM
     Route: 048
     Dates: start: 20180130, end: 20180630
  10. LACTEC [Concomitant]
     Active Substance: CALCIUM CHLORIDE ANHYDROUS\POTASSIUM CHLORIDE\SODIUM CHLORIDE\SODIUM LACTATE
     Indication: FLUID REPLACEMENT
     Dosage: 500 MILLILITER
     Route: 041
     Dates: start: 20180630, end: 20180630
  11. GLACTIV [Concomitant]
     Active Substance: SITAGLIPTIN
     Dosage: 50 MILLIGRAM
     Route: 048
     Dates: start: 20180705, end: 20180713
  12. DEXAMETHASONE ORAL [Suspect]
     Active Substance: DEXAMETHASONE
     Indication: PLASMA CELL MYELOMA
     Dosage: 10 MILLIGRAM
     Route: 048
     Dates: start: 20160726, end: 20160806
  13. VOGLIBOSE [Concomitant]
     Active Substance: VOGLIBOSE
     Indication: DIABETES MELLITUS
     Dosage: .9 MILLIGRAM
     Route: 048
     Dates: start: 20150310, end: 20180630
  14. DAIPHEN [Concomitant]
     Active Substance: SULFAMETHOXAZOLE\TRIMETHOPRIM
     Indication: PNEUMOCYSTIS JIROVECII PNEUMONIA
     Dosage: 1 TABLET
     Route: 048
     Dates: start: 20161213
  15. LYRICA [Concomitant]
     Active Substance: PREGABALIN
     Indication: PERIPHERAL SENSORY NEUROPATHY
     Dosage: 150 MILLIGRAM
     Route: 048
     Dates: start: 20170613, end: 20180630
  16. FELBINAC CATAPLASM [Concomitant]
     Indication: BACK PAIN
     Dosage: 70 MILLIGRAM
     Route: 061
     Dates: start: 20170817, end: 20171108
  17. TAZOPIPE [Concomitant]
     Active Substance: PIPERACILLIN SODIUM\TAZOBACTAM SODIUM
     Indication: DIARRHOEA
     Dosage: 9 GRAM
     Route: 041
     Dates: start: 20180711, end: 20180711
  18. LAC?B [Concomitant]
     Active Substance: BIFIDOBACTERIUM SPP.
     Indication: DIARRHOEA
     Dosage: 3 GRAM
     Route: 048
     Dates: start: 20180703, end: 20180713
  19. IRRIBOW [Concomitant]
     Active Substance: RAMOSETRON HYDROCHLORIDE
     Indication: DIARRHOEA
     Dosage: 5 MICROGRAM
     Route: 048
     Dates: start: 20180710, end: 20180710
  20. HUMALOG [Concomitant]
     Active Substance: INSULIN LISPRO
     Dosage: 8 IU (INTERNATIONAL UNIT)
     Route: 058
     Dates: start: 20180704, end: 20180704
  21. VOGLIBOSE [Concomitant]
     Active Substance: VOGLIBOSE
     Dosage: .9 MILLIGRAM
     Route: 048
     Dates: start: 20180704, end: 20180711
  22. ACICLOVIR [Concomitant]
     Active Substance: ACYCLOVIR
     Indication: ANTIVIRAL PROPHYLAXIS
     Dosage: 200 MILLIGRAM
     Route: 048
     Dates: start: 20161130, end: 20180630
  23. ACICLOVIR [Concomitant]
     Active Substance: ACYCLOVIR
     Dosage: 200 MILLIGRAM
     Route: 048
     Dates: start: 20180706
  24. LACTEC [Concomitant]
     Active Substance: CALCIUM CHLORIDE ANHYDROUS\POTASSIUM CHLORIDE\SODIUM CHLORIDE\SODIUM LACTATE
     Dosage: 2000 MILLILITER
     Route: 041
     Dates: start: 20180701, end: 20180702
  25. TAZOPIPE [Concomitant]
     Active Substance: PIPERACILLIN SODIUM\TAZOBACTAM SODIUM
     Indication: PROPHYLAXIS
     Dosage: 18 GRAM
     Route: 041
     Dates: start: 20180712, end: 20180713
  26. TAZOPIPE [Concomitant]
     Active Substance: PIPERACILLIN SODIUM\TAZOBACTAM SODIUM
     Dosage: 4.5 GRAM
     Route: 041
     Dates: start: 20180714, end: 20180714
  27. GLACTIV [Concomitant]
     Active Substance: SITAGLIPTIN
     Indication: DIABETES MELLITUS
     Dosage: 50 MILLIGRAM
     Route: 048
     Dates: start: 20180425, end: 20180630
  28. ZINC OXIDE. [Concomitant]
     Active Substance: ZINC OXIDE
     Indication: SKIN DISORDER
     Route: 061
     Dates: start: 20180714, end: 20180720
  29. CC?4047 [Suspect]
     Active Substance: POMALIDOMIDE
     Dosage: 3 MILLIGRAM
     Route: 048
     Dates: start: 20180626, end: 20180630
  30. BORTEZOMIB. [Suspect]
     Active Substance: BORTEZOMIB
     Indication: PLASMA CELL MYELOMA
     Dosage: 1.3 MILLIGRAM/SQ. METER
     Route: 058
     Dates: start: 20160726, end: 20160805
  31. FEBURIC [Concomitant]
     Active Substance: FEBUXOSTAT
     Indication: HYPERURICAEMIA
     Dosage: 10 MILLIGRAM
     Route: 048
     Dates: start: 20161206
  32. ACETAMINOPHEN. [Concomitant]
     Active Substance: ACETAMINOPHEN
     Indication: NEURALGIA
     Dosage: 1200 MILLIGRAM
     Route: 048
     Dates: start: 20170926, end: 20180630
  33. LACTEC [Concomitant]
     Active Substance: CALCIUM CHLORIDE ANHYDROUS\POTASSIUM CHLORIDE\SODIUM CHLORIDE\SODIUM LACTATE
     Dosage: 1000 MILLILITER
     Route: 041
     Dates: start: 20180703, end: 20180703
  34. ALBUMIN TANNATE [Concomitant]
     Active Substance: ALBUMIN BOVINE\TANNIC ACID
     Indication: DIARRHOEA
     Dosage: 3 GRAM
     Route: 048
     Dates: start: 20180709, end: 20180713
  35. SOLULACT [Concomitant]
     Indication: SUPPLEMENTATION THERAPY
     Dosage: 1000 MILLILITER
     Route: 041
     Dates: start: 20180711, end: 20180711
  36. VITAMEDIN [Concomitant]
     Active Substance: CYANOCOBALAMIN\PYRIDOXINE HYDROCHLORIDE\THIAMINE
     Indication: VITAMIN SUPPLEMENTATION
     Dosage: 1 VIAL
     Route: 041
     Dates: start: 20180711, end: 20180713
  37. BFLUID [Concomitant]
     Active Substance: AMINO ACIDS\DEXTROSE\ELECTROLYTES NOS\VITAMINS
     Indication: NUTRITIONAL SUPPLEMENTATION
     Dosage: 1000 MILLILITER
     Route: 041
     Dates: start: 20180714, end: 20180714
  38. PROPETO [Concomitant]
     Indication: SKIN DISORDER
     Route: 061
     Dates: start: 20180712, end: 20180720
  39. BORTEZOMIB. [Suspect]
     Active Substance: BORTEZOMIB
     Dosage: 1.3 MILLIGRAM/SQ. METER
     Route: 058
     Dates: start: 20180626, end: 20180626
  40. PARIET [Concomitant]
     Active Substance: RABEPRAZOLE SODIUM
     Indication: PROPHYLAXIS AGAINST GASTROINTESTINAL ULCER
     Dosage: 10 MILLIGRAM
     Route: 048
     Dates: start: 20080619, end: 20180630
  41. JANUVIA [Concomitant]
     Active Substance: SITAGLIPTIN PHOSPHATE
     Indication: DIABETES MELLITUS
     Dosage: 50 MILLIGRAM
     Route: 048
     Dates: start: 20120522, end: 20180324
  42. FEBURIC [Concomitant]
     Active Substance: FEBUXOSTAT
     Dosage: 10 MILLIGRAM
     Route: 048
     Dates: start: 20180703
  43. TERBINAFINE HYDROCHLORIDE. [Concomitant]
     Active Substance: TERBINAFINE HYDROCHLORIDE
     Indication: TINEA INFECTION
     Dosage: 1 GRAM
     Route: 061
     Dates: start: 20160214
  44. FUROSEMIDE. [Concomitant]
     Active Substance: FUROSEMIDE
     Indication: OEDEMA
     Dosage: 20 MILLIGRAM
     Route: 048
     Dates: start: 20170508, end: 20180705
  45. HUMALOG [Concomitant]
     Active Substance: INSULIN LISPRO
     Dosage: 4 IU (INTERNATIONAL UNIT)
     Route: 058
     Dates: start: 20180715, end: 20180715
  46. BELSOMRA [Concomitant]
     Active Substance: SUVOREXANT
     Indication: INSOMNIA
     Dosage: 15 MILLIGRAM
     Route: 048
     Dates: start: 20180710
  47. DEXAMETHASONE ORAL [Suspect]
     Active Substance: DEXAMETHASONE
     Dosage: 10 MILLIGRAM
     Route: 048
     Dates: start: 20180626, end: 20180627
  48. BAYASPIRIN [Concomitant]
     Active Substance: ASPIRIN
     Dosage: 100 MILLIGRAM
     Route: 048
     Dates: start: 20180703
  49. ENTECAVIR. [Concomitant]
     Active Substance: ENTECAVIR
     Dosage: .5 MILLIGRAM
     Route: 048
     Dates: start: 20180706
  50. SOLULACT [Concomitant]
     Dosage: 500 MILLILITER
     Route: 041
     Dates: start: 20180714, end: 20180714

REACTIONS (1)
  - Cerebral infarction [Recovered/Resolved]

NARRATIVE: CASE EVENT DATE: 20180630
